FAERS Safety Report 8895568 (Version 1)
Quarter: 2012Q4

REPORT INFORMATION
  Report Type: 
  Country: US (occurrence: US)
  Receive Date: 20121108
  Receipt Date: 20121108
  Transmission Date: 20130627
  Serious: Yes (Hospitalization)
  Sender: FDA-Public Use
  Company Number: US-VERTEX PHARMACEUTICAL INC.-2012-024196

PATIENT
  Age: 60 Year
  Sex: Male
  Weight: 53 kg

DRUGS (4)
  1. VX-950 [Suspect]
     Indication: HEPATITIS C
     Dosage: 750 mg, tid
     Route: 048
     Dates: start: 2012
  2. PEGINTRON                          /01543001/ [Suspect]
     Indication: HEPATITIS C
     Dosage: 80 ?g, qw
     Route: 058
     Dates: start: 2012
  3. RIBAPAK [Suspect]
     Indication: HEPATITIS C
     Dosage: 400 mg, bid
     Dates: start: 2012
  4. VISTARIL /00058402/ [Concomitant]
     Dosage: UNK UNK, prn

REACTIONS (5)
  - Blood count abnormal [Recovered/Resolved]
  - Blood pressure fluctuation [Recovered/Resolved]
  - Depression [Recovered/Resolved]
  - Weight increased [Unknown]
  - Skin discolouration [None]
